FAERS Safety Report 6029644-0 (Version None)
Quarter: 2009Q1

REPORT INFORMATION
  Report Type: 
  Country: None (occurrence: None)
  Receive Date: 20090107
  Receipt Date: 20090105
  Transmission Date: 20090719
  Serious: Yes (Other)
  Sender: FDA-Public Use
  Company Number: US-BAYER-200829450NA

PATIENT
  Sex: Female

DRUGS (1)
  1. AVELOX [Suspect]
     Indication: SUBCUTANEOUS ABSCESS
     Dosage: UNIT DOSE: 400 MG
     Route: 048

REACTIONS (1)
  - CONVULSION [None]
